FAERS Safety Report 8115424-9 (Version None)
Quarter: 2012Q1

REPORT INFORMATION
  Report Type: 
  Country: None (occurrence: None)
  Receive Date: 20120206
  Receipt Date: 20120124
  Transmission Date: 20120608
  Serious: Yes (Hospitalization)
  Sender: FDA-Public Use
  Company Number: ES-ELI_LILLY_AND_COMPANY-ES201012000735

PATIENT
  Sex: Female
  Weight: 3.2 kg

DRUGS (5)
  1. AKINETON [Concomitant]
     Dosage: UNK, QD
  2. ZYPREXA [Suspect]
     Dosage: 10 MG, UNK
     Route: 048
     Dates: start: 20110215
  3. ZYPREXA [Suspect]
     Indication: SCHIZOAFFECTIVE DISORDER
     Dosage: 10 MG, UNK
     Route: 048
     Dates: start: 20000305, end: 20101116
  4. DEPAKENE [Concomitant]
     Indication: CYCLOTHYMIC DISORDER
     Dosage: 1000 MG, QD
     Dates: start: 20031101, end: 20101116
  5. HALOPERIDOL [Concomitant]
     Dosage: 10 UNK, UNK

REACTIONS (4)
  - PARANOIA [None]
  - MATERNAL EXPOSURE DURING PREGNANCY [None]
  - NAUSEA [None]
  - MANIA [None]
